FAERS Safety Report 9856199 (Version 1)
Quarter: 2013Q4

REPORT INFORMATION
  Report Type: Spontaneous
  Country: US (occurrence: None)
  Receive Date: 20131226
  Receipt Date: 20131226
  Transmission Date: 20140711
  Serious: Yes (Other)
  Sender: FDA-Public Use
  Company Number: PHEH2013US014817

PATIENT
  Age: 34 Year
  Sex: Male
  Weight: 108.8 kg

DRUGS (5)
  1. GILENYA (FINGOLIMOD) CAPSULE [Suspect]
     Route: 048
     Dates: start: 201301, end: 20130613
  2. LEXAPRO (ESCITALOPRAM OXALATE) [Concomitant]
  3. SIMVASTATIN (SIMVASTATIN) [Suspect]
  4. LISINOPRIL (LISINOPRIL) [Concomitant]
  5. ZYRTEC (CETURIZINE HYDROCHLORIDE) [Concomitant]

REACTIONS (1)
  - Liver function test abnormal [None]
